FAERS Safety Report 5066171-1 (Version None)
Quarter: 2006Q3

REPORT INFORMATION
  Report Type: 
  Country: None (occurrence: None)
  Receive Date: 20060705
  Receipt Date: 20050606
  Transmission Date: 20061208
  Serious: Yes (Other)
  Sender: FDA-Public Use
  Company Number: US-2005-009874

PATIENT
  Age: 21 Year
  Sex: Female
  Weight: 59.9 kg

DRUGS (1)
  1. YASMIN [Suspect]
     Indication: ORAL CONTRACEPTION
     Dosage: 1 TAB(S), 1X/DAY, ORAL
     Route: 048
     Dates: start: 20040401, end: 20050602

REACTIONS (1)
  - PREGNANCY ON ORAL CONTRACEPTIVE [None]
